FAERS Safety Report 5103908-7 (Version None)
Quarter: 2006Q3

REPORT INFORMATION
  Report Type: 
  Country: None (occurrence: None)
  Receive Date: 20060913
  Receipt Date: 20060901
  Transmission Date: 20061208
  Serious: Yes (Hospitalization)
  Sender: FDA-Public Use
  Company Number: DE-BAYER-200611145BVD

PATIENT
  Age: 44 Year
  Sex: Male
  Weight: 69 kg

DRUGS (4)
  1. NEXAVAR [Suspect]
     Indication: METASTATIC RENAL CELL CARCINOMA
     Route: 048
     Dates: start: 20060101, end: 20060801
  2. DEXAMETHASONE [Concomitant]
     Route: 048
     Dates: start: 20060101, end: 20060801
  3. KEVATRIL [Concomitant]
     Indication: NAUSEA
     Route: 048
     Dates: start: 20060101, end: 20060801
  4. TRAMADOL HCL [Concomitant]
     Indication: PAIN
     Route: 048
     Dates: start: 20060101, end: 20060801

REACTIONS (6)
  - BRAIN STEM HAEMORRHAGE [None]
  - CEREBRAL HAEMORRHAGE [None]
  - HYPOCHROMASIA [None]
  - METASTASES TO LYMPH NODES [None]
  - METASTASES TO PLEURA [None]
  - MICROCYTOSIS [None]
